FAERS Safety Report 7461890-1 (Version None)
Quarter: 2011Q2

REPORT INFORMATION
  Report Type: 
  Country: None (occurrence: None)
  Receive Date: 20110506
  Receipt Date: 20110425
  Transmission Date: 20111010
  Serious: Yes (Hospitalization)
  Sender: FDA-Public Use
  Company Number: JP-BAYER-200812881BYL

PATIENT
  Age: 65 Year
  Sex: Female

DRUGS (11)
  1. FLUITRAN [Concomitant]
     Dosage: 2 MG (DAILY DOSE), , ORAL
     Route: 048
  2. ATELEC [Concomitant]
     Dosage: 20 MG (DAILY DOSE), , ORAL
     Route: 048
  3. BEZATOL [Concomitant]
     Dosage: 400 MG (DAILY DOSE), , ORAL
     Route: 048
  4. URSO 250 [Concomitant]
     Dosage: 600 MG (DAILY DOSE), , ORAL
     Route: 048
  5. AMARYL [Concomitant]
     Dosage: 1 MG (DAILY DOSE), , ORAL
     Route: 048
  6. NEXAVAR [Suspect]
     Indication: RENAL CELL CARCINOMA
     Dosage: 400 MG (DAILY DOSE), , ORAL
     Route: 048
     Dates: start: 20081110, end: 20081117
  7. INDERAL [Concomitant]
     Dosage: 30 MG (DAILY DOSE), , ORAL
     Route: 048
  8. DIOVAN [Concomitant]
     Dosage: 160 MG (DAILY DOSE), , ORAL
     Route: 048
  9. MELBIN [Concomitant]
     Dosage: 750 MG (DAILY DOSE), , ORAL
     Route: 048
  10. OMEPRAL [Concomitant]
     Dosage: 10 MG (DAILY DOSE), , ORAL
     Route: 048
  11. BASEN [Concomitant]
     Dosage: 0.9 MG (DAILY DOSE), , ORAL
     Route: 048

REACTIONS (2)
  - HYPOKALAEMIA [None]
  - PANCYTOPENIA [None]
